FAERS Safety Report 14296430 (Version 1)
Quarter: 2017Q4

REPORT INFORMATION
  Report Type: Spontaneous
  Country: US (occurrence: US)
  Receive Date: 20171218
  Receipt Date: 20171218
  Transmission Date: 20180321
  Serious: Yes (Other)
  Sender: FDA-Public Use
  Company Number: US-THE MENTHOLATUM COMPANY-2037282

PATIENT
  Age: 37 Year
  Sex: Male
  Weight: 170.45 kg

DRUGS (1)
  1. EQUATE PAIN RELIEVING [Suspect]
     Active Substance: CAMPHOR (SYNTHETIC)\MENTHOL\METHYL SALICYLATE
     Indication: BACK PAIN
     Route: 061
     Dates: start: 20171206, end: 20171206

REACTIONS (1)
  - Chemical burn of skin [Recovering/Resolving]

NARRATIVE: CASE EVENT DATE: 20171207
